FAERS Safety Report 4731542-7 (Version None)
Quarter: 2005Q3

REPORT INFORMATION
  Report Type: 
  Country: None (occurrence: None)
  Receive Date: 20050719
  Receipt Date: 20040614
  Transmission Date: 20060218
  Serious: Yes (Other)
  Sender: FDA-Public Use
  Company Number: 199938

PATIENT
  Age: 43 Year
  Sex: Female
  Weight: 60.782 kg

DRUGS (5)
  1. AVONEX [Suspect]
     Indication: MULTIPLE SCLEROSIS
     Dosage: 30 UG;QW;IM
     Route: 030
     Dates: start: 20040521
  2. LEVOTHROID [Concomitant]
  3. PREMARIN [Concomitant]
  4. KLONOPIN [Concomitant]
  5. ASPIRIN [Concomitant]

REACTIONS (6)
  - BACK PAIN [None]
  - BONE PAIN [None]
  - INFLUENZA LIKE ILLNESS [None]
  - NAUSEA [None]
  - SWOLLEN TONGUE [None]
  - VOMITING [None]
